FAERS Safety Report 13773172 (Version 1)
Quarter: 2017Q3

REPORT INFORMATION
  Report Type: Spontaneous
  Country: US (occurrence: US)
  Receive Date: 20170720
  Receipt Date: 20170720
  Transmission Date: 20171127
  Serious: Yes (Hospitalization)
  Sender: FDA-Public Use
  Company Number: US-B.I. PHARMACEUTICALS,INC./RIDGEFIELD-2017-BI-040001

PATIENT
  Age: 48 Year
  Sex: Female

DRUGS (1)
  1. COMBIVENT [Suspect]
     Active Substance: ALBUTEROL SULFATE\IPRATROPIUM BROMIDE
     Indication: CHRONIC OBSTRUCTIVE PULMONARY DISEASE
     Dosage: ONE PUFF EVERY SIX HOURS;  FORM STRENGTH/ UNIT DOSE: 20 MCG / 100 MCG;  FORMULATION: INHALATION SPRA
     Route: 055
     Dates: start: 2016

REACTIONS (3)
  - Chronic obstructive pulmonary disease [Unknown]
  - Pyrexia [Unknown]
  - Cough [Unknown]

NARRATIVE: CASE EVENT DATE: 20170602
